FAERS Safety Report 4729506-2 (Version None)
Quarter: 2005Q3

REPORT INFORMATION
  Report Type: 
  Country: None (occurrence: None)
  Receive Date: 20050801
  Receipt Date: 20050705
  Transmission Date: 20060218
  Serious: Yes (Disabling)
  Sender: FDA-Public Use
  Company Number: AU-MERCK-0507AUS00023

PATIENT

DRUGS (2)
  1. ZOCOR [Suspect]
     Route: 048
  2. BROMHEXINE HYDROCHLORIDE [Suspect]
     Route: 048

REACTIONS (5)
  - MOUTH ULCERATION [None]
  - MYALGIA [None]
  - PYREXIA [None]
  - RASH [None]
  - STEVENS-JOHNSON SYNDROME [None]
